FAERS Safety Report 6979564-X (Version None)
Quarter: 2010Q3

REPORT INFORMATION
  Report Type: 
  Country: None (occurrence: None)
  Receive Date: 20100910
  Receipt Date: 20100910
  Transmission Date: 20110219
  Serious: Yes (Hospitalization)
  Sender: FDA-Public Use
  Company Number: None

PATIENT
  Age: 79 Year
  Sex: Male
  Weight: 73 kg

DRUGS (1)
  1. WARFARIN SODIUM [Suspect]
     Indication: PULMONARY EMBOLISM
     Dosage: 5.71 MG EVERY DAY PO
     Route: 048
     Dates: start: 20100519

REACTIONS (6)
  - CARDIOMYOPATHY [None]
  - FAECES DISCOLOURED [None]
  - HAEMORRHAGE [None]
  - INTESTINAL FUNCTIONAL DISORDER [None]
  - OEDEMA [None]
  - THERAPEUTIC AGENT TOXICITY [None]
